FAERS Safety Report 7583062-2 (Version None)
Quarter: 2011Q2

REPORT INFORMATION
  Report Type: 
  Country: None (occurrence: None)
  Receive Date: 20110527
  Receipt Date: 20101103
  Transmission Date: 20111010
  Serious: Yes (Hospitalization, Other)
  Sender: FDA-Public Use
  Company Number: US201002004010

PATIENT
  Age: 31 Year
  Sex: Female
  Weight: 90.2 kg

DRUGS (5)
  1. BYETTA [Suspect]
     Indication: DIABETES MELLITUS
     Dates: start: 20060401, end: 20090102
  2. PROTON PUMP INHIBITORS [Concomitant]
  3. EXENATIDE PEN (EXENATIDE PEN) [Concomitant]
  4. LISINOPRIL HYDROCHLORTHIAZID (HYDROCHLOROTHIAZIDE, LISINOPRIL) [Concomitant]
  5. METFORMIN HCL [Concomitant]

REACTIONS (5)
  - CHOLELITHIASIS [None]
  - CHOLECYSTITIS [None]
  - PANCREATITIS [None]
  - HEPATOMEGALY [None]
  - RENAL DISORDER [None]
